FAERS Safety Report 4465018-1 (Version None)
Quarter: 2004Q4

REPORT INFORMATION
  Report Type: 
  Country: None (occurrence: None)
  Receive Date: 20041004
  Receipt Date: 20040629
  Transmission Date: 20050328
  Serious: Yes (Life-Threatening)
  Sender: FDA-Public Use
  Company Number: DE-ROCHE-372750

PATIENT
  Age: 47 Year
  Sex: Male
  Weight: 118 kg

DRUGS (1)
  1. ROFERON-A [Suspect]
     Route: 058
     Dates: start: 19980515

REACTIONS (1)
  - AUTOIMMUNE THYROIDITIS [None]
